FAERS Safety Report 19690594 (Version 2)
Quarter: 2021Q3

REPORT INFORMATION
  Report Type: Spontaneous
  Country: IT (occurrence: IT)
  Receive Date: 20210812
  Receipt Date: 20210820
  Transmission Date: 20211014
  Serious: Yes (Hospitalization)
  Sender: FDA-Public Use
  Company Number: IT-PFIZER INC-202101024186

PATIENT
  Age: 56 Year
  Sex: Male

DRUGS (2)
  1. MESAVANCOL [Concomitant]
     Active Substance: MESALAMINE
     Dosage: 1200 MG; UNKNOWN
  2. ZESSLY [Suspect]
     Active Substance: INFLIXIMAB
     Indication: ACUTE HAEMORRHAGIC ULCERATIVE COLITIS
     Dosage: 500 MG, CYCLIC (1 CYCLICAL)
     Route: 040
     Dates: start: 20210413, end: 20210429

REACTIONS (4)
  - Asthenia [Recovered/Resolved]
  - Arthralgia [Recovered/Resolved]
  - Pyrexia [Recovered/Resolved]
  - Pneumonia [Recovered/Resolved]

NARRATIVE: CASE EVENT DATE: 20210429
